FAERS Safety Report 16255922 (Version 1)
Quarter: 2019Q2

REPORT INFORMATION
  Report Type: Spontaneous
  Country: US (occurrence: US)
  Receive Date: 20190430
  Receipt Date: 20190430
  Transmission Date: 20190711
  Serious: Yes (Hospitalization)
  Sender: FDA-Public Use
  Company Number: US-PFIZER INC-2019177057

PATIENT
  Age: 77 Year
  Sex: Female
  Weight: 49.9 kg

DRUGS (3)
  1. TORISEL [Suspect]
     Active Substance: TEMSIROLIMUS
     Indication: LUNG NEOPLASM MALIGNANT
     Dosage: UNK UNK, WEEKLY (30 MINUTES THROUGH POWER PORT)
     Dates: start: 2018
  2. ZOFRAN [Concomitant]
     Active Substance: ONDANSETRON HYDROCHLORIDE
     Dosage: UNK
  3. POTASSIUM CHLORIDE. [Concomitant]
     Active Substance: POTASSIUM CHLORIDE
     Dosage: UNK

REACTIONS (9)
  - Weight decreased [Not Recovered/Not Resolved]
  - Hyperhidrosis [Not Recovered/Not Resolved]
  - Chills [Unknown]
  - Decreased appetite [Not Recovered/Not Resolved]
  - Insomnia [Not Recovered/Not Resolved]
  - Dysgeusia [Unknown]
  - Thyroid disorder [Not Recovered/Not Resolved]
  - Night sweats [Unknown]
  - Vomiting [Unknown]

NARRATIVE: CASE EVENT DATE: 2018
